FAERS Safety Report 6028958-8 (Version None)
Quarter: 2009Q1

REPORT INFORMATION
  Report Type: 
  Country: None (occurrence: None)
  Receive Date: 20090106
  Receipt Date: 20081226
  Transmission Date: 20090719
  Serious: Yes (Hospitalization)
  Sender: FDA-Public Use
  Company Number: FR-ELI_LILLY_AND_COMPANY-FR200809001472

PATIENT
  Age: 52 Year
  Sex: Female
  Weight: 114 kg

DRUGS (6)
  1. BYETTA [Suspect]
     Indication: TYPE 2 DIABETES MELLITUS
     Dosage: 5 UG, 2/D
     Route: 058
     Dates: start: 20080501
  2. LANTUS [Concomitant]
     Indication: TYPE 2 DIABETES MELLITUS
     Dosage: 60 IU, DAILY (1/D)
     Route: 058
     Dates: end: 20080501
  3. NOVONORM [Concomitant]
     Indication: TYPE 2 DIABETES MELLITUS
     Dosage: 9 MG, DAILY (1/D)
     Route: 048
  4. GLUCOPHAGE [Concomitant]
     Indication: TYPE 2 DIABETES MELLITUS
     Dosage: 3000 MG, DAILY (1/D)
     Route: 048
  5. SEROPRAM [Concomitant]
     Dosage: 20 MG, DAILY (1/D)
     Route: 065
  6. CRESTOR [Concomitant]
     Dosage: 10 MG, DAILY (1/D)
     Route: 065

REACTIONS (3)
  - GLYCOSYLATED HAEMOGLOBIN INCREASED [None]
  - INTESTINAL OBSTRUCTION [None]
  - WEIGHT DECREASED [None]
